FAERS Safety Report 8243000-6 (Version None)
Quarter: 2012Q1

REPORT INFORMATION
  Report Type: 
  Country: None (occurrence: None)
  Receive Date: 20120329
  Receipt Date: 20120323
  Transmission Date: 20120608
  Serious: Yes (Death, Hospitalization, Other)
  Sender: FDA-Public Use
  Company Number: US-PFIZER INC-2012076048

PATIENT
  Sex: Female
  Weight: 51.701 kg

DRUGS (8)
  1. FISH OIL [Concomitant]
     Indication: BLOOD CHOLESTEROL ABNORMAL
     Dosage: 1400 MG, DAILY
  2. REVATIO [Suspect]
     Indication: PULMONARY HYPERTENSION
     Dosage: 20 MG, DAILY
  3. LISINOPRIL [Concomitant]
     Indication: HYPERTENSION
     Dosage: 2.5 MG, DAILY
  4. SPIRONOLACTONE [Concomitant]
     Indication: SWELLING
     Dosage: HALF TABLET OF 25MG, DAILY
     Route: 048
  5. ACETYLSALICYLIC ACID [Concomitant]
     Dosage: 325 MG, DAILY
  6. VICODIN ES [Concomitant]
     Indication: PAIN
     Dosage: HALF A TABLET AS NEEDED
  7. LIPITOR [Concomitant]
     Indication: BLOOD CHOLESTEROL ABNORMAL
     Dosage: 10 MG, DAILY
  8. ADVAIR DISKUS 100/50 [Concomitant]
     Indication: LUNG DISORDER
     Dosage: 250/50 MCG, DAILY

REACTIONS (2)
  - PULMONARY FIBROSIS [None]
  - CHRONIC OBSTRUCTIVE PULMONARY DISEASE [None]
